FAERS Safety Report 17398308 (Version 2)
Quarter: 2020Q1

REPORT INFORMATION
  Report Type: Other
  Country: US (occurrence: US)
  Receive Date: 20200210
  Receipt Date: 20200219
  Transmission Date: 20200409
  Serious: Yes (Other)
  Sender: FDA-Public Use
  Company Number: US-CROWN LABORATORIES, INC.-2080045

PATIENT
  Age: 60 Year
  Sex: Male

DRUGS (1)
  1. TRIDERM [Suspect]
     Active Substance: TRIAMCINOLONE ACETONIDE
     Route: 061

REACTIONS (1)
  - Back pain [Unknown]
